FAERS Safety Report 9774922 (Version 1)
Quarter: 2013Q4

REPORT INFORMATION
  Report Type: Spontaneous
  Country: US (occurrence: US)
  Receive Date: 20131220
  Receipt Date: 20131220
  Transmission Date: 20140711
  Serious: No
  Sender: FDA-Public Use
  Company Number: US-GLAXOSMITHKLINE-A1015646A

PATIENT
  Age: 83 Year
  Sex: Male
  Weight: 84 kg

DRUGS (11)
  1. AVODART [Suspect]
     Indication: BENIGN PROSTATIC HYPERPLASIA
     Dosage: 1CAP PER DAY
     Route: 048
     Dates: start: 20120730
  2. RAPAFLO [Suspect]
     Indication: POLLAKIURIA
     Dosage: 8MG PER DAY
     Route: 048
     Dates: start: 201207
  3. QUINAPRIL [Concomitant]
  4. PLAVIX [Concomitant]
  5. BABY ASPIRIN [Concomitant]
  6. LIPITOR [Concomitant]
  7. SPIRONOLACTONE [Concomitant]
  8. COSOPT [Concomitant]
  9. RESTASIS [Concomitant]
  10. LATANOPROST [Concomitant]
  11. PROCARDIA [Concomitant]

REACTIONS (5)
  - Lip dry [Not Recovered/Not Resolved]
  - Dry mouth [Unknown]
  - Tongue dry [Unknown]
  - Aptyalism [Not Recovered/Not Resolved]
  - Lip exfoliation [Not Recovered/Not Resolved]
